FAERS Safety Report 10876901 (Version 1)
Quarter: 2015Q1

REPORT INFORMATION
  Report Type: Spontaneous
  Country: US (occurrence: US)
  Receive Date: 20150302
  Receipt Date: 20150302
  Transmission Date: 20150721
  Serious: Yes (Other)
  Sender: FDA-Public Use
  Company Number: US-BEH-2015049092

PATIENT
  Sex: Female

DRUGS (1)
  1. HIZENTRA [Suspect]
     Active Substance: HUMAN IMMUNOGLOBULIN G
     Indication: IMMUNODEFICIENCY COMMON VARIABLE
     Dosage: APPROX 2012
     Route: 058

REACTIONS (8)
  - Infusion site erythema [Unknown]
  - Ligament disorder [Unknown]
  - Infusion site bruising [Unknown]
  - Pain [Unknown]
  - Microsurgery to hand [Unknown]
  - Unevaluable event [Unknown]
  - Infusion site mass [Unknown]
  - Infusion site swelling [Unknown]

NARRATIVE: CASE EVENT DATE: 2014
